FAERS Safety Report 7596114 (Version 7)
Quarter: 2013Q1

REPORT INFORMATION
  Report Type: Spontaneous
  Country: US (occurrence: US)
  Receive Date: 20100920
  Receipt Date: 20130118
  Transmission Date: 20140127
  Serious: Yes (Life-Threatening)
  Sender: FDA-Public Use
  Company Number: US-ASTRAZENECA-2009SE32182

PATIENT
  Age: 52 Year
  Sex: Male

DRUGS (1)
  1. SEROQUEL [Suspect]
     Route: 048

REACTIONS (12)
  - Suicidal ideation [Unknown]
  - Bronchitis [Unknown]
  - Malaise [Unknown]
  - Hearing impaired [Unknown]
  - Insomnia [Unknown]
  - Anxiety disorder [Unknown]
  - Aphagia [Unknown]
  - Mental impairment [Unknown]
  - Bipolar disorder [Unknown]
  - Intentional drug misuse [Unknown]
  - Intentional drug misuse [Unknown]
  - Drug dose omission [Unknown]
